FAERS Safety Report 12755626 (Version 1)
Quarter: 2016Q3

REPORT INFORMATION
  Report Type: Report from Study
  Country: FR (occurrence: FR)
  Receive Date: 20160916
  Receipt Date: 20160916
  Transmission Date: 20161109
  Serious: Yes (Hospitalization)
  Sender: FDA-Public Use
  Company Number: FR-TEVA-691385ISR

PATIENT
  Age: 82 Year
  Sex: Female

DRUGS (3)
  1. ERLOTINIB [Interacting]
     Active Substance: ERLOTINIB
     Indication: NON-SMALL CELL LUNG CANCER
     Dosage: 150MG/DAY
     Route: 065
     Dates: start: 201402, end: 20141226
  2. CARBOPLATIN. [Suspect]
     Active Substance: CARBOPLATIN
     Indication: NON-SMALL CELL LUNG CANCER
     Dosage: 348MG
     Route: 065
     Dates: start: 20141209
  3. PEMETREXED [Interacting]
     Active Substance: PEMETREXED
     Indication: NON-SMALL CELL LUNG CANCER
     Dosage: 825MG
     Route: 065
     Dates: start: 20141209

REACTIONS (3)
  - Asthenia [Unknown]
  - Drug interaction [Recovering/Resolving]
  - Diarrhoea [Recovered/Resolved]
